FAERS Safety Report 21820809 (Version 1)
Quarter: 2023Q1

REPORT INFORMATION
  Report Type: Spontaneous
  Country: IN (occurrence: IN)
  Receive Date: 20230105
  Receipt Date: 20230105
  Transmission Date: 20230417
  Serious: Yes (Hospitalization)
  Sender: FDA-Public Use
  Company Number: IN-drreddys-LIT/IND/22/0159277

PATIENT
  Age: 20 Year
  Sex: Male

DRUGS (5)
  1. CETIRIZINE [Suspect]
     Active Substance: CETIRIZINE HYDROCHLORIDE
     Indication: Hepatitis cholestatic
  2. URSODIOL [Suspect]
     Active Substance: URSODIOL
     Indication: Hepatitis cholestatic
  3. CALAMINE [Suspect]
     Active Substance: CALAMINE\FERRIC OXIDE RED\ZINC OXIDE
     Indication: Hepatitis cholestatic
  4. HYDROXYZINE [Suspect]
     Active Substance: HYDROXYZINE HYDROCHLORIDE
     Indication: Hepatitis cholestatic
     Dosage: AT NIGHT
  5. CHOLESTYRAMINE [Suspect]
     Active Substance: CHOLESTYRAMINE
     Indication: Hepatitis cholestatic
     Dosage: BEFORE MEALS

REACTIONS (2)
  - Rectal haemorrhage [Recovered/Resolved]
  - Drug ineffective for unapproved indication [Unknown]
